FAERS Safety Report 22594517 (Version 3)
Quarter: 2023Q2

REPORT INFORMATION
  Report Type: Spontaneous
  Country: PR (occurrence: PR)
  Receive Date: 20230613
  Receipt Date: 20230627
  Transmission Date: 20230721
  Serious: Yes (Other)
  Sender: FDA-Public Use
  Company Number: PR-PFIZER INC-202300216406

PATIENT
  Age: 86 Year
  Sex: Male
  Weight: 84.82 kg

DRUGS (8)
  1. VYNDAMAX [Suspect]
     Active Substance: TAFAMIDIS
     Indication: Cardiac amyloidosis
     Dosage: 61 MG ONCE A DAY IN MORNING
     Route: 048
  2. VYNDAMAX [Suspect]
     Active Substance: TAFAMIDIS
     Indication: Amyloidosis senile
  3. GLUTAMINE [ALANYL GLUTAMINE] [Concomitant]
     Indication: Dementia Alzheimer^s type
     Dosage: 24 MG, 1X/DAY
  4. QUETIAPINE [Concomitant]
     Active Substance: QUETIAPINE
     Indication: Depression
     Dosage: UNK (150), 1X/DAY
  5. LOSARTAN [Concomitant]
     Active Substance: LOSARTAN
     Indication: Blood pressure abnormal
     Dosage: UNK(125)
  6. GALANTAMINE [Concomitant]
     Active Substance: GALANTAMINE
     Indication: Diabetes mellitus
     Dosage: 40 MG, 1X/DAY
  7. LANTUS [Concomitant]
     Active Substance: INSULIN GLARGINE
     Indication: Diabetes mellitus
     Dosage: 20 ML
  8. VITAMINS [Concomitant]
     Active Substance: VITAMINS
     Dosage: UNK UNK, DAILY

REACTIONS (2)
  - Dementia Alzheimer^s type [Unknown]
  - Product dose omission issue [Unknown]
